FAERS Safety Report 9231310 (Version 1)
Quarter: 2013Q2

REPORT INFORMATION
  Report Type: Report from Study
  Country: IL (occurrence: IL)
  Receive Date: 20130415
  Receipt Date: 20130415
  Transmission Date: 20140414
  Serious: Yes (Hospitalization, Other)
  Sender: FDA-Public Use
  Company Number: IL-ROXANE LABORATORIES, INC.-2008-DE-07757GD

PATIENT
  Age: 25 Year
  Sex: Male

DRUGS (21)
  1. MORPHINE [Suspect]
     Indication: PAIN
     Dosage: 90 MG
     Route: 048
  2. MORPHINE [Suspect]
     Dosage: 120 MG
     Route: 048
  3. MORPHINE [Suspect]
     Dosage: 100 MG
     Route: 042
  4. MORPHINE [Suspect]
     Dosage: PCA 2 MG AVAIL. Q 7 MIN
  5. MORPHINE [Suspect]
     Dosage: 90 MG
     Route: 048
  6. MORPHINE [Suspect]
     Dosage: 2 MG BOLUS
  7. MEPERIDINE [Suspect]
     Indication: POSTOPERATIVE ANALGESIA
     Dosage: 1 MG/KG UPON REQUEST
     Route: 030
  8. OXYCODONE [Suspect]
     Indication: PAIN
     Dosage: 40 MG
  9. OXYCODONE [Suspect]
     Dosage: 40 MG
     Route: 048
  10. KETAMINE [Suspect]
     Indication: PAIN
     Dosage: 250 MG
  11. KETAMINE [Suspect]
     Dosage: 5 MG INTERMITTENT BOLUSES
  12. KETAMINE [Suspect]
     Dosage: 200 MG
     Route: 042
  13. KETAMINE [Suspect]
     Dosage: 40 MG ON DEMAND, 7 MIN LOCKOUT
  14. KETAMINE [Suspect]
     Dosage: 25 MG BOLUSES
  15. GABAPENTIN [Suspect]
     Indication: BURNING SENSATION
     Dosage: 400 MG
     Route: 048
  16. AMITRIPTYLINE [Suspect]
     Indication: BURNING SENSATION
     Dosage: 50 MG
  17. AMITRIPTYLINE [Suspect]
     Dosage: 25 MG
  18. CLONAZEPAM [Suspect]
     Indication: BURNING SENSATION
     Dosage: 1 MG
  19. CLONAZEPAM [Suspect]
     Dosage: 0.25 MG
  20. OXYCONTIN [Concomitant]
     Indication: PAIN
     Dosage: 40 MG
  21. CARBAMAZEPINE [Concomitant]
     Indication: PAIN
     Dosage: 200 MG

REACTIONS (3)
  - Drug ineffective [Unknown]
  - Depressed level of consciousness [Unknown]
  - Dizziness [Unknown]
